FAERS Safety Report 6118986-6 (Version None)
Quarter: 2009Q1

REPORT INFORMATION
  Report Type: 
  Country: None (occurrence: None)
  Receive Date: 20090316
  Receipt Date: 20090213
  Transmission Date: 20090719
  Serious: No
  Sender: FDA-Public Use
  Company Number: US-BAYER-200911940NA

PATIENT
  Age: 28 Year
  Sex: Female

DRUGS (1)
  1. YAZ [Suspect]
     Indication: DRUG USE FOR UNKNOWN INDICATION
     Route: 048
     Dates: start: 20080801

REACTIONS (6)
  - ABDOMINAL PAIN LOWER [None]
  - CHEST DISCOMFORT [None]
  - MALAISE [None]
  - RASH [None]
  - VAGINAL HAEMORRHAGE [None]
  - VOMITING [None]
